FAERS Safety Report 6815126-2 (Version None)
Quarter: 2010Q3

REPORT INFORMATION
  Report Type: 
  Country: None (occurrence: None)
  Receive Date: 20100702
  Receipt Date: 20100621
  Transmission Date: 20110219
  Serious: Yes (Death, Hospitalization, Other)
  Sender: FDA-Public Use
  Company Number: PHEH2006US12310

PATIENT
  Sex: Male
  Weight: 64.41 kg

DRUGS (52)
  1. AREDIA [Suspect]
     Indication: MULTIPLE MYELOMA
     Dosage: UNK
  2. ZOMETA [Suspect]
     Indication: MULTIPLE MYELOMA
  3. LODINE [Concomitant]
  4. ATACAND [Concomitant]
  5. PATANOL [Concomitant]
  6. PERCOCET [Concomitant]
  7. HYDROCODONE BITARTRATE [Concomitant]
  8. PENICILLIN V [Concomitant]
  9. AUGMENTIN '125' [Concomitant]
  10. VIBRAMYCIN                              /NET/ [Concomitant]
  11. VELCADE [Concomitant]
  12. RADIATION THERAPY [Concomitant]
  13. DOXYCYCLINE [Concomitant]
  14. PERIDEX [Concomitant]
  15. HYOSCYAMINE SULFATE [Concomitant]
  16. LORAZEPAM [Concomitant]
  17. OXYCODONE HCL [Concomitant]
  18. PREDNISONE TAB [Concomitant]
  19. INDOMETHACIN [Concomitant]
  20. TOLMETIN [Concomitant]
  21. INDOCIN [Concomitant]
  22. VITAMIN B6 [Concomitant]
  23. VITAMIN B-12 [Concomitant]
  24. FOLIC ACID [Concomitant]
  25. COLCHICINE [Concomitant]
  26. ALBALON [Concomitant]
  27. NASACORT [Concomitant]
  28. ALLOPURINOL [Concomitant]
  29. CORTICOSTEROIDS [Concomitant]
  30. VIAGRA [Concomitant]
  31. THALIDOMIDE [Concomitant]
  32. TYLENOL [Concomitant]
  33. CYCLOBENZAPRINE [Concomitant]
  34. FLEXERIL [Concomitant]
  35. LOZOL [Concomitant]
  36. LIDODERM [Concomitant]
  37. FLOMAX [Concomitant]
  38. INDAPAMIDE [Concomitant]
  39. LEVBID [Concomitant]
  40. DETROL [Concomitant]
  41. CIPRO [Concomitant]
  42. CHOLESTYRAMINE RESIN [Concomitant]
  43. LOPERAMIDE [Concomitant]
  44. SODIUM BICARBONATE [Concomitant]
  45. CHEMOTHERAPEUTICS NOS [Concomitant]
  46. ZADITOR [Concomitant]
  47. AMBIEN [Concomitant]
  48. MULTI-VITAMINS [Concomitant]
  49. METOPROLOL TARTRATE [Concomitant]
  50. CYANOCOBALAMIN [Concomitant]
  51. LISINOPRIL [Concomitant]
  52. ZOLPIDEM [Concomitant]

REACTIONS (64)
  - ABDOMINAL PAIN UPPER [None]
  - ANAEMIA [None]
  - ANXIETY [None]
  - AORTIC ARTERIOSCLEROSIS [None]
  - AORTIC DILATATION [None]
  - ASPIRATION PLEURAL CAVITY [None]
  - ASTHENIA [None]
  - BLEPHARITIS [None]
  - BONE DISORDER [None]
  - CHEST TUBE INSERTION [None]
  - DEATH [None]
  - DECREASED INTEREST [None]
  - DEFORMITY [None]
  - DIZZINESS [None]
  - DRY EYE [None]
  - DYSPNOEA [None]
  - EMOTIONAL DISTRESS [None]
  - FAILURE TO THRIVE [None]
  - GAIT DISTURBANCE [None]
  - GENERAL PHYSICAL HEALTH DETERIORATION [None]
  - HEART RATE INCREASED [None]
  - HYPERBARIC OXYGEN THERAPY [None]
  - HYPOPHAGIA [None]
  - IMPLANT SITE INDURATION [None]
  - INTERVERTEBRAL DISC PROTRUSION [None]
  - JAW OPERATION [None]
  - LIFE EXPECTANCY SHORTENED [None]
  - LOSS OF CONSCIOUSNESS [None]
  - LUNG INFILTRATION [None]
  - MALAISE [None]
  - MULTIPLE MYELOMA [None]
  - MUSCLE SPASMS [None]
  - MUSCULOSKELETAL PAIN [None]
  - MYOPATHY [None]
  - NERVE ROOT COMPRESSION [None]
  - NEUROPATHY PERIPHERAL [None]
  - ORTHOSTATIC HYPOTENSION [None]
  - OSTEOARTHRITIS [None]
  - OSTEOMYELITIS CHRONIC [None]
  - OSTEONECROSIS OF JAW [None]
  - OSTEOPENIA [None]
  - PAIN [None]
  - PALLOR [None]
  - PLEURAL EFFUSION [None]
  - PRESYNCOPE [None]
  - PSYCHOMOTOR HYPERACTIVITY [None]
  - PYREXIA [None]
  - RADICULOPATHY [None]
  - RENAL FAILURE [None]
  - RESPIRATORY ARREST [None]
  - SCOLIOSIS [None]
  - SOMNOLENCE [None]
  - SPINAL COLUMN STENOSIS [None]
  - SPINAL COMPRESSION FRACTURE [None]
  - SPINAL OSTEOARTHRITIS [None]
  - SYNCOPE [None]
  - TENDON DISORDER [None]
  - TINEA CRURIS [None]
  - TOOTH ABSCESS [None]
  - TOOTH EXTRACTION [None]
  - TREMOR [None]
  - TRICUSPID VALVE INCOMPETENCE [None]
  - VENTRICULAR HYPERTROPHY [None]
  - WEIGHT DECREASED [None]
